FAERS Safety Report 7482597-0 (Version None)
Quarter: 2011Q2

REPORT INFORMATION
  Report Type: 
  Country: None (occurrence: None)
  Receive Date: 20110516
  Receipt Date: 20110511
  Transmission Date: 20111010
  Serious: Yes (Death, Other)
  Sender: FDA-Public Use
  Company Number: JP-ASTRAZENECA-2011SE28100

PATIENT
  Age: 66 Year

DRUGS (2)
  1. ROPIVACAINE HYDROCHLORIDE [Suspect]
     Indication: POSTOPERATIVE ANALGESIA
     Dosage: MIXTURE OF 0.1 % ROPIVACAINE 200 ML + FENTANYL 600 MCG AT 4 ML/H
     Route: 008
  2. FENTANYL [Suspect]
     Indication: POSTOPERATIVE ANALGESIA
     Dosage: MIXTURE OF 0.1 % ROPIVACAINE 200 ML + FENTANYL 600 MCG AT 4 ML/H
     Route: 008

REACTIONS (3)
  - SHOCK [None]
  - MONOPLEGIA [None]
  - PULMONARY EMBOLISM [None]
